FAERS Safety Report 24787247 (Version 2)
Quarter: 2025Q1

REPORT INFORMATION
  Report Type: Spontaneous
  Country: US (occurrence: US)
  Receive Date: 20241230
  Receipt Date: 20250210
  Transmission Date: 20250408
  Serious: No
  Sender: Unknown Manufacturer
  Company Number: US-862174955-ML2024-06749

PATIENT
  Age: 10 Year
  Sex: Female

DRUGS (1)
  1. CROMOLYN SODIUM [Suspect]
     Active Substance: CROMOLYN SODIUM
     Indication: Immune system disorder
     Dosage: DOSE: 3 AMPULES AT A TIME?STRENGTH: 100 MG/5 ML
     Route: 048
     Dates: start: 202412

REACTIONS (9)
  - Pain [Recovered/Resolved]
  - Odynophagia [Recovered/Resolved]
  - Gastrooesophageal reflux disease [Recovered/Resolved]
  - Gastrointestinal pain [Recovered/Resolved]
  - Headache [Recovered/Resolved]
  - Product taste abnormal [Unknown]
  - Product quality issue [Unknown]
  - Product label issue [Unknown]
  - Drug ineffective [Unknown]

NARRATIVE: CASE EVENT DATE: 20241201
